FAERS Safety Report 16275096 (Version 1)
Quarter: 2019Q2

REPORT INFORMATION
  Report Type: Spontaneous
  Country: BY (occurrence: BY)
  Receive Date: 20190504
  Receipt Date: 20190504
  Transmission Date: 20190711
  Serious: Yes (Other)
  Sender: FDA-Public Use
  Company Number: PHHY2019BY100908

PATIENT
  Age: 32 Year
  Sex: Male
  Weight: 66 kg

DRUGS (16)
  1. CLOFAZIMINE [Suspect]
     Active Substance: CLOFAZIMINE
     Dosage: 200 MG, QD
     Route: 048
     Dates: start: 20190123, end: 20190214
  2. MOXIFLOXACIN. [Suspect]
     Active Substance: MOXIFLOXACIN
     Indication: TUBERCULOSIS
     Dosage: 400 MG, QD
     Route: 048
     Dates: start: 20180628, end: 20181220
  3. CLOFAZIMINE [Suspect]
     Active Substance: CLOFAZIMINE
     Dosage: 200 MG, QD
     Route: 048
     Dates: start: 20190227
  4. LINEZOLID. [Suspect]
     Active Substance: LINEZOLID
     Indication: TUBERCULOSIS
     Dosage: 600 MG, QD
     Route: 048
     Dates: start: 20180628, end: 20181218
  5. DELAMANID [Suspect]
     Active Substance: DELAMANID
     Dosage: 200 MG, QD
     Route: 048
     Dates: start: 20190123, end: 20190214
  6. MOXIFLOXACIN. [Suspect]
     Active Substance: MOXIFLOXACIN
     Dosage: 400 MG, QD
     Route: 048
     Dates: start: 20190123, end: 20190214
  7. BEDAQUILINE [Suspect]
     Active Substance: BEDAQUILINE
     Dosage: 200 MG, TIW
     Route: 048
     Dates: start: 201807, end: 20181220
  8. BEDAQUILINE [Suspect]
     Active Substance: BEDAQUILINE
     Dosage: 200 MG, QD
     Route: 048
     Dates: start: 20190123, end: 20190214
  9. CLOFAZIMINE [Suspect]
     Active Substance: CLOFAZIMINE
     Dosage: 200 MG, QD
     Route: 048
     Dates: start: 201808, end: 20181220
  10. DELAMANID [Suspect]
     Active Substance: DELAMANID
     Dosage: 200 MG, QD
     Route: 048
     Dates: start: 20190227
  11. BEDAQUILINE [Suspect]
     Active Substance: BEDAQUILINE
     Indication: TUBERCULOSIS
     Dosage: 400 MG, QD
     Route: 048
     Dates: start: 20180628, end: 201807
  12. BEDAQUILINE [Suspect]
     Active Substance: BEDAQUILINE
     Dosage: 200 MG, QD
     Route: 048
     Dates: start: 20190227
  13. DACLATASVIR. [Concomitant]
     Active Substance: DACLATASVIR
     Indication: HEPATITIS C
     Dosage: UNK
     Route: 065
     Dates: start: 20181130, end: 20181220
  14. CLOFAZIMINE [Suspect]
     Active Substance: CLOFAZIMINE
     Indication: TUBERCULOSIS
     Dosage: 200 MG, QD
     Route: 048
     Dates: start: 20180628, end: 201808
  15. SOFOSBUVIR [Concomitant]
     Active Substance: SOFOSBUVIR
     Indication: HEPATITIS C
     Dosage: UNK
     Route: 065
     Dates: start: 20181130, end: 20181220
  16. DELAMANID [Suspect]
     Active Substance: DELAMANID
     Indication: TUBERCULOSIS
     Dosage: 200 MG, QD
     Route: 048
     Dates: start: 20180628, end: 20181220

REACTIONS (3)
  - Optic nerve disorder [Recovered/Resolved]
  - Incorrect product administration duration [Unknown]
  - Haemoglobin decreased [Unknown]

NARRATIVE: CASE EVENT DATE: 20181214
